FAERS Safety Report 4283273-8 (Version None)
Quarter: 2004Q1

REPORT INFORMATION
  Report Type: 
  Country: None (occurrence: None)
  Receive Date: 20040129
  Receipt Date: 20040127
  Transmission Date: 20041129
  Serious: Yes (Hospitalization)
  Sender: FDA-Public Use
  Company Number: 2003-12-0705

PATIENT
  Age: 69 Year
  Sex: Male
  Weight: 85 kg

DRUGS (6)
  1. CLARINEX [Suspect]
     Indication: OEDEMA
     Dosage: ORAL
     Route: 048
     Dates: start: 20031027, end: 20031105
  2. CYCLO 3 CAPSULES [Suspect]
     Indication: OEDEMA
     Dosage: ORAL
     Route: 048
     Dates: start: 20031027, end: 20031105
  3. PARFENAC [Suspect]
     Indication: OEDEMA
     Dates: start: 20031027, end: 20031105
  4. OLIVE OIL OIL [Suspect]
     Indication: OEDEMA
     Dates: start: 20031027
  5. ALCOHOL NO DOSE FORM (INTERNATIONAL SUBMISS [Suspect]
     Indication: OEDEMA PERIPHERAL
     Dates: start: 20031027
  6. AQUEOUS CREAM LOTION [Suspect]
     Indication: OEDEMA
     Dates: start: 20031027

REACTIONS (5)
  - BLOOD IMMUNOGLOBULIN E INCREASED [None]
  - DERMATITIS CONTACT [None]
  - ECZEMA [None]
  - EOSINOPHIL COUNT INCREASED [None]
  - INFLAMMATION [None]
